FAERS Safety Report 24555048 (Version 2)
Quarter: 2024Q4

REPORT INFORMATION
  Report Type: Spontaneous
  Country: IT (occurrence: IT)
  Receive Date: 20241028
  Receipt Date: 20241113
  Transmission Date: 20250115
  Serious: Yes (Death, Life-Threatening, Other)
  Sender: ACCORD
  Company Number: IT-Accord-453307

PATIENT
  Age: 76 Year
  Sex: Male

DRUGS (3)
  1. CARBOPLATIN [Suspect]
     Active Substance: CARBOPLATIN
     Indication: Squamous cell carcinoma of lung
     Dates: start: 202211
  2. PACLITAXEL [Suspect]
     Active Substance: PACLITAXEL
     Indication: Squamous cell carcinoma of lung
     Dates: start: 202211
  3. PEMBROLIZUMAB [Suspect]
     Active Substance: PEMBROLIZUMAB
     Indication: Squamous cell carcinoma of lung
     Dates: start: 202211, end: 202404

REACTIONS (2)
  - Acute promyelocytic leukaemia [Unknown]
  - Idiopathic intracranial hypertension [Fatal]

NARRATIVE: CASE EVENT DATE: 20240101
